FAERS Safety Report 21021707 (Version 1)
Quarter: 2022Q2

REPORT INFORMATION
  Report Type: Other
  Country: US (occurrence: None)
  Receive Date: 20220629
  Receipt Date: 20220629
  Transmission Date: 20220721
  Serious: Yes (Other)
  Sender: FDA-Public Use
  Company Number: US-ROCHE-3126699

PATIENT
  Age: 57 Year
  Sex: Female
  Weight: 59.020 kg

DRUGS (8)
  1. OCREVUS [Suspect]
     Active Substance: OCRELIZUMAB
     Indication: Relapsing-remitting multiple sclerosis
     Dosage: 600MG INTRAVENOUSLY EVERY 6 MONTHS
     Route: 042
  2. GABAPENTIN [Concomitant]
     Active Substance: GABAPENTIN
  3. LEVOTHYROXINE [Concomitant]
     Active Substance: LEVOTHYROXINE
  4. PRAVASTATIN [Concomitant]
     Active Substance: PRAVASTATIN
  5. NAPROXEN [Concomitant]
     Active Substance: NAPROXEN
  6. MELATONIN [Concomitant]
     Active Substance: MELATONIN
  7. BIOTIN [Concomitant]
     Active Substance: BIOTIN
  8. CETIRIZINE [Concomitant]
     Active Substance: CETIRIZINE HYDROCHLORIDE

REACTIONS (6)
  - COVID-19 [Recovered/Resolved]
  - Alopecia [Not Recovered/Not Resolved]
  - Asthenia [Not Recovered/Not Resolved]
  - Multiple sclerosis relapse [Unknown]
  - Rhinitis allergic [Unknown]
  - Blood cholesterol increased [Unknown]

NARRATIVE: CASE EVENT DATE: 20200101
